FAERS Safety Report 4382431-1 (Version None)
Quarter: 2004Q2

REPORT INFORMATION
  Report Type: 
  Country: None (occurrence: None)
  Receive Date: 20040622
  Receipt Date: 20040521
  Transmission Date: 20050107
  Serious: Yes (Hospitalization)
  Sender: FDA-Public Use
  Company Number: GB-AMGEN-UK077293

PATIENT
  Sex: Male
  Weight: 58.1 kg

DRUGS (7)
  1. PEGFILGRASTIM [Suspect]
     Indication: CHEMOTHERAPY
     Route: 058
     Dates: start: 20040201
  2. PACLITAXEL [Suspect]
     Route: 042
     Dates: start: 20040201
  3. CARBOPLATIN [Suspect]
     Route: 042
     Dates: start: 20040201
  4. ALLOPURINOL [Concomitant]
     Route: 048
  5. LOPERAMIDE HCL [Concomitant]
     Route: 048
  6. ZOPICLONE [Concomitant]
     Route: 048
  7. MAGNESIUM CHELATE [Concomitant]
     Route: 048

REACTIONS (3)
  - ANAEMIA [None]
  - EPISTAXIS [None]
  - PLATELET COUNT DECREASED [None]
